FAERS Safety Report 26185886 (Version 1)
Quarter: 2025Q4

REPORT INFORMATION
  Report Type: Spontaneous
  Country: US (occurrence: None)
  Receive Date: 20251220
  Receipt Date: 20251220
  Transmission Date: 20260118
  Serious: No
  Sender: FDA-CTU
  Company Number: None

PATIENT
  Age: 35 Year
  Sex: Female
  Weight: 78.75 kg

DRUGS (3)
  1. WEGOVY [Suspect]
     Active Substance: SEMAGLUTIDE
     Indication: Weight decreased
  2. VITAMINS [Concomitant]
     Active Substance: VITAMINS
  3. WEGOVY [Concomitant]
     Active Substance: SEMAGLUTIDE
     Dosage: FREQUENCY : WEEKLY;

REACTIONS (4)
  - Arthralgia [None]
  - Pain [None]
  - Arthralgia [None]
  - Contusion [None]

NARRATIVE: CASE EVENT DATE: 20251008
